FAERS Safety Report 9217819 (Version 1)
Quarter: 2013Q2

REPORT INFORMATION
  Report Type: Spontaneous
  Country: BR (occurrence: BR)
  Receive Date: 20130408
  Receipt Date: 20130408
  Transmission Date: 20140414
  Serious: Yes (Hospitalization)
  Sender: FDA-Public Use
  Company Number: BR-ELI_LILLY_AND_COMPANY-BR201303009281

PATIENT
  Age: 56 Year
  Sex: Male

DRUGS (5)
  1. HUMALOG LISPRO [Suspect]
     Indication: TYPE 1 DIABETES MELLITUS
     Dosage: UNK, TID
     Route: 058
     Dates: start: 2003
  2. LANTUS [Concomitant]
     Dosage: UNK, UNKNOWN
     Route: 065
     Dates: start: 2003
  3. DIOVAN [Concomitant]
     Dosage: 1 DF, UNKNOWN
     Route: 065
  4. AMLODIPINA                         /00972401/ [Concomitant]
     Dosage: 2 DF, UNKNOWN
     Route: 065
  5. AAS [Concomitant]
     Dosage: 2 DF, UNKNOWN
     Route: 065

REACTIONS (3)
  - Cerebrovascular accident [Recovering/Resolving]
  - Hyperglycaemia [Not Recovered/Not Resolved]
  - Drug ineffective [Not Recovered/Not Resolved]
